FAERS Safety Report 10207006 (Version 1)
Quarter: 2014Q2

REPORT INFORMATION
  Report Type: Spontaneous
  Country: US (occurrence: US)
  Receive Date: 20140530
  Receipt Date: 20140530
  Transmission Date: 20141212
  Serious: No
  Sender: FDA-Public Use
  Company Number: US-009507513-1405USA014020

PATIENT
  Sex: Male

DRUGS (1)
  1. DULERA [Suspect]
     Indication: ASTHMA
     Dosage: 200/5, TWO INHALATIONS TWICE A DAY(BID)
     Route: 055

REACTIONS (1)
  - Dysphonia [Recovered/Resolved]
